FAERS Safety Report 7208090-8 (Version None)
Quarter: 2011Q1

REPORT INFORMATION
  Report Type: 
  Country: None (occurrence: None)
  Receive Date: 20110104
  Receipt Date: 20101228
  Transmission Date: 20110831
  Serious: No
  Sender: FDA-Public Use
  Company Number: US-PFIZER INC-2010181119

PATIENT
  Age: 46 Year
  Sex: Male
  Weight: 90.703 kg

DRUGS (4)
  1. ACYCLOVIR [Concomitant]
  2. ADVIL PM [Suspect]
     Dosage: 2 UNK, 1X/DAY
     Route: 048
     Dates: start: 20101226
  3. SUDAFED 12 HOUR [Concomitant]
  4. LORATADINE [Concomitant]
     Dosage: 10 MG, UNK

REACTIONS (3)
  - PAIN [None]
  - PARAESTHESIA [None]
  - MUSCLE TIGHTNESS [None]
